FAERS Safety Report 12699489 (Version 2)
Quarter: 2016Q3

REPORT INFORMATION
  Report Type: Spontaneous
  Country: US (occurrence: US)
  Receive Date: 20160830
  Receipt Date: 20160916
  Transmission Date: 20161109
  Serious: No
  Sender: FDA-Public Use
  Company Number: US-BAYER-2016-164389

PATIENT
  Sex: Female

DRUGS (2)
  1. MIRENA [Suspect]
     Active Substance: LEVONORGESTREL
     Dosage: 20 MCG/24HR, CONT
     Route: 015
     Dates: start: 20151123, end: 20160725
  2. MIRENA [Suspect]
     Active Substance: LEVONORGESTREL
     Dosage: 20 MCG/24HR, CONT
     Route: 015
     Dates: start: 20160725, end: 20160725

REACTIONS (7)
  - Device deployment issue [Unknown]
  - Post procedural discomfort [Unknown]
  - Weight increased [None]
  - Procedural pain [Unknown]
  - Abdominal distension [None]
  - Vaginal haemorrhage [None]
  - Complication of device insertion [Unknown]

NARRATIVE: CASE EVENT DATE: 20160725
